FAERS Safety Report 14303266 (Version 3)
Quarter: 2020Q3

REPORT INFORMATION
  Report Type: Spontaneous
  Country: GR (occurrence: GR)
  Receive Date: 20171219
  Receipt Date: 20190130
  Transmission Date: 20201104
  Serious: Yes (Other)
  Sender: FDA-Public Use
  Company Number: GR-MYLANLABS-2017M1079325

PATIENT
  Age: 29 Year
  Sex: Male

DRUGS (5)
  1. METHOTREXATE. [Suspect]
     Active Substance: METHOTREXATE
     Indication: PSORIATIC ARTHROPATHY
     Dosage: 12.5 MG, QW
     Route: 048
     Dates: start: 201610
  2. ETORICOXIB. [Suspect]
     Active Substance: ETORICOXIB
     Dosage: 120 MILLIGRAM
     Dates: start: 20161001
  3. METOJECT [Suspect]
     Active Substance: METHOTREXATE SODIUM
     Indication: PSORIATIC ARTHROPATHY
     Dosage: 25 MG, QW
     Dates: start: 201702
  4. PREZOLON [Suspect]
     Active Substance: PREDNISOLONE
     Indication: PSORIATIC ARTHROPATHY
     Dosage: 20 MG, QD
     Dates: start: 201702
  5. ETORICOXIB. [Suspect]
     Active Substance: ETORICOXIB
     Indication: PSORIATIC ARTHROPATHY
     Dosage: 120 MG, QD
     Dates: start: 201702

REACTIONS (6)
  - Limb injury [Unknown]
  - Condition aggravated [Recovering/Resolving]
  - Off label use [Unknown]
  - Oedema peripheral [Recovering/Resolving]
  - Overdose [Unknown]
  - Psoriatic arthropathy [Recovering/Resolving]

NARRATIVE: CASE EVENT DATE: 201612
